FAERS Safety Report 5245965-3 (Version None)
Quarter: 2007Q1

REPORT INFORMATION
  Report Type: 
  Country: None (occurrence: None)
  Receive Date: 20070221
  Receipt Date: 20070209
  Transmission Date: 20070707
  Serious: Yes (Other)
  Sender: FDA-Public Use
  Company Number: CHNY2007JP00487

PATIENT
  Age: 50 Year
  Sex: Male

DRUGS (1)
  1. NICOTINE [Suspect]
     Indication: SMOKING CESSATION THERAPY
     Dosage: 21 MG, QD, TRANSDERMAL
     Route: 062
     Dates: start: 20061209, end: 20061225

REACTIONS (8)
  - APPLICATION SITE ERYTHEMA [None]
  - APPLICATION SITE PAPULES [None]
  - DERMATITIS [None]
  - DERMATITIS CONTACT [None]
  - PRURITUS GENERALISED [None]
  - RASH GENERALISED [None]
  - RASH PAPULAR [None]
  - URTICARIA GENERALISED [None]
